FAERS Safety Report 15427733 (Version 1)
Quarter: 2018Q3

REPORT INFORMATION
  Report Type: Spontaneous
  Country: US (occurrence: US)
  Receive Date: 20180925
  Receipt Date: 20180925
  Transmission Date: 20181010
  Serious: No
  Sender: FDA-Public Use
  Company Number: US-UNITED THERAPEUTICS-UNT-2018-015468

PATIENT
  Sex: Female
  Weight: 92.52 kg

DRUGS (1)
  1. REMODULIN [Suspect]
     Active Substance: TREPROSTINIL
     Indication: PULMONARY ARTERIAL HYPERTENSION
     Dosage: 0.0335 ?G/KG, CONTINUING
     Route: 058
     Dates: start: 20170710

REACTIONS (2)
  - Feeling abnormal [Unknown]
  - Infusion site discharge [Unknown]
